FAERS Safety Report 13197514 (Version 1)
Quarter: 2017Q1

REPORT INFORMATION
  Report Type: Spontaneous
  Country: US (occurrence: US)
  Receive Date: 20170207
  Receipt Date: 20170207
  Transmission Date: 20170428
  Serious: Yes (Hospitalization)
  Sender: FDA-Public Use
  Company Number: None

PATIENT
  Age: 63 Year
  Sex: Female
  Weight: 70 kg

DRUGS (2)
  1. ERLOTINIB 100MG PO QD [Suspect]
     Active Substance: ERLOTINIB
     Indication: NON-SMALL CELL LUNG CANCER
     Route: 048
     Dates: start: 20150415, end: 20170207
  2. BEVACIZUMAB 15MG/KG IV Q21 DAYS [Suspect]
     Active Substance: BEVACIZUMAB
     Indication: NON-SMALL CELL LUNG CANCER
     Dosage: 15MG/KG IV Q21 DAYS
     Route: 042
     Dates: start: 20150415, end: 20170207

REACTIONS (4)
  - Chest pain [None]
  - Abdominal pain [None]
  - Malignant neoplasm progression [None]
  - Metastases to peritoneum [None]

NARRATIVE: CASE EVENT DATE: 20170202
